FAERS Safety Report 15770169 (Version 1)
Quarter: 2018Q4

REPORT INFORMATION
  Report Type: Spontaneous
  Country: US (occurrence: US)
  Receive Date: 20181227
  Receipt Date: 20181227
  Transmission Date: 20190205
  Serious: Yes (Life-Threatening, Hospitalization)
  Sender: FDA-Public Use
  Company Number: None

PATIENT
  Age: 19 Year
  Sex: Female
  Weight: 50 kg

DRUGS (5)
  1. CLOTRIMAZOLE 1% CREAM [Concomitant]
     Active Substance: CLOTRIMAZOLE
     Dates: start: 20181226
  2. METRONIDAZOLE 500 MG IV Q 8 HRS [Concomitant]
     Dates: start: 20181226
  3. MULTIVITAMIN 1 DAILY [Concomitant]
  4. PIPERACILLIN AND TAZOBACTAM [Suspect]
     Active Substance: PIPERACILLIN SODIUM\TAZOBACTAM SODIUM
     Indication: ABDOMINAL PAIN
     Route: 042
     Dates: start: 20181226, end: 20181227
  5. NORGESTIMATE ETHINYL ESTRADIOL TRIPHASIC 1 TABLET DAILY [Concomitant]

REACTIONS (2)
  - Thrombocytopenia [None]
  - Appendicitis [None]

NARRATIVE: CASE EVENT DATE: 20181227
